FAERS Safety Report 6468476-6 (Version None)
Quarter: 2009Q4

REPORT INFORMATION
  Report Type: 
  Country: None (occurrence: None)
  Receive Date: 20091202
  Receipt Date: 20091202
  Transmission Date: 20100525
  Serious: Yes (Disabling)
  Sender: FDA-Public Use
  Company Number: None

PATIENT
  Sex: Female
  Weight: 65.7716 kg

DRUGS (2)
  1. ZICAM COLD REMEDY RAPID MELTS [Suspect]
     Indication: NASOPHARYNGITIS
     Dosage: 1 TABLET 3-4 HOURS MELT IN MOUTH
     Route: 048
     Dates: start: 20090504
  2. ZICAM COLD REMEDY RAPID MELTS [Suspect]
     Indication: NASOPHARYNGITIS
     Dosage: 1 TABLET 3-4 HOURS MELT IN MOUTH
     Route: 048
     Dates: start: 20090505

REACTIONS (2)
  - AGEUSIA [None]
  - ANOSMIA [None]
